FAERS Safety Report 13817578 (Version 1)
Quarter: 2017Q3

REPORT INFORMATION
  Report Type: Spontaneous
  Country: DE (occurrence: DE)
  Receive Date: 20170731
  Receipt Date: 20170731
  Transmission Date: 20171127
  Serious: Yes (Other)
  Sender: FDA-Public Use
  Company Number: DE-TEVA-789731GER

PATIENT
  Age: 66 Year
  Sex: Male

DRUGS (7)
  1. PANTOPRAZOLE SODIUM. [Suspect]
     Active Substance: PANTOPRAZOLE SODIUM
     Dosage: 40 MILLIGRAM DAILY; 1 TABLET IN THE MORNING
     Route: 048
     Dates: start: 20170429, end: 20170515
  2. PANTOPRAZOLE SODIUM. [Suspect]
     Active Substance: PANTOPRAZOLE SODIUM
     Dosage: 40 MILLIGRAM DAILY; 1 TABLET BEFORE BREAKFAST
     Route: 048
     Dates: start: 20170709, end: 20170711
  3. GLIMEPIRID [Concomitant]
     Active Substance: GLIMEPIRIDE
  4. INSULIN [Concomitant]
     Active Substance: INSULIN NOS
  5. PANTOPRAZOLE SODIUM. [Suspect]
     Active Substance: PANTOPRAZOLE SODIUM
     Dosage: 80 MILLIGRAM DAILY; EACH 1 TABLET IN THE MORNING AND IN THE EVENING
     Route: 048
     Dates: start: 20170321, end: 20170428
  6. XELEVIA [Concomitant]
     Active Substance: SITAGLIPTIN PHOSPHATE
  7. FORMATRIS DA [Concomitant]

REACTIONS (2)
  - Respiratory distress [Unknown]
  - Dyspnoea [Unknown]

NARRATIVE: CASE EVENT DATE: 2017
